FAERS Safety Report 8163689-X (Version None)
Quarter: 2012Q1

REPORT INFORMATION
  Report Type: 
  Country: None (occurrence: None)
  Receive Date: 20120224
  Receipt Date: 20120209
  Transmission Date: 20120608
  Serious: Yes (Hospitalization, Other)
  Sender: FDA-Public Use
  Company Number: PHHY2012CA012619

PATIENT

DRUGS (1)
  1. SANDOSTATIN LAR [Suspect]
     Indication: CARCINOID TUMOUR
     Dosage: 40 MG, EVERY 3 WEEKS
     Route: 030
     Dates: start: 20021101

REACTIONS (8)
  - ASTHENIA [None]
  - COMA [None]
  - BLOOD POTASSIUM ABNORMAL [None]
  - ACCIDENT [None]
  - MULTIPLE INJURIES [None]
  - FEMORAL ARTERY OCCLUSION [None]
  - BLOOD SODIUM ABNORMAL [None]
  - DIARRHOEA [None]
